FAERS Safety Report 18751254 (Version 1)
Quarter: 2021Q1

REPORT INFORMATION
  Report Type: Other
  Country: CA (occurrence: CA)
  Receive Date: 20210118
  Receipt Date: 20210118
  Transmission Date: 20210419
  Serious: Yes (Other)
  Sender: FDA-Public Use
  Company Number: CA-ACCORD-214398

PATIENT
  Age: 66 Year
  Sex: Male

DRUGS (23)
  1. NEORAL [Suspect]
     Active Substance: CYCLOSPORINE
     Indication: PROPHYLAXIS AGAINST TRANSPLANT REJECTION
     Dosage: FREQUENCY: 2 EVERY 1 DAYS
     Route: 065
  2. METOPROLOL. [Concomitant]
     Active Substance: METOPROLOL
  3. ALLOPURINOL. [Concomitant]
     Active Substance: ALLOPURINOL
  4. WARFARIN [Concomitant]
     Active Substance: WARFARIN
  5. ADVAGRAF [Concomitant]
     Active Substance: TACROLIMUS
  6. CALCIUM ACETATE. [Concomitant]
     Active Substance: CALCIUM ACETATE
  7. EPOETIN ALFA [Concomitant]
     Active Substance: ERYTHROPOIETIN
  8. PROGRAF [Suspect]
     Active Substance: TACROLIMUS
     Indication: PROPHYLAXIS AGAINST TRANSPLANT REJECTION
     Dosage: FREQUENCY: 2 EVERY 1 DAYS
     Route: 065
  9. PREDNISONE/PREDNISONE ACETATE [Concomitant]
     Active Substance: PREDNISONE ACETATE
     Indication: PROPHYLAXIS AGAINST TRANSPLANT REJECTION
     Route: 065
  10. PROGRAF [Suspect]
     Active Substance: TACROLIMUS
     Indication: PROPHYLAXIS AGAINST TRANSPLANT REJECTION
     Dosage: FREQUENCY: 2 EVERY 1 DAYS
     Route: 065
  11. PROGRAF [Suspect]
     Active Substance: TACROLIMUS
     Indication: PROPHYLAXIS AGAINST TRANSPLANT REJECTION
     Route: 065
  12. CALCITRIOL. [Concomitant]
     Active Substance: CALCITRIOL
  13. CANDESARTAN/CANDESARTAN CILEXETIL [Concomitant]
     Active Substance: CANDESARTAN
  14. IRON [Concomitant]
     Active Substance: IRON
  15. RAPAMUNE [Concomitant]
     Active Substance: SIROLIMUS
     Indication: PROPHYLAXIS AGAINST TRANSPLANT REJECTION
     Route: 065
  16. MYCOPHENOLIC ACID. [Suspect]
     Active Substance: MYCOPHENOLIC ACID
     Indication: PROPHYLAXIS AGAINST TRANSPLANT REJECTION
     Dosage: FREQUENCY: 2 EVERY 1 DAYS
     Route: 065
  17. RAPAMUNE [Concomitant]
     Active Substance: SIROLIMUS
     Indication: PROPHYLAXIS AGAINST TRANSPLANT REJECTION
     Route: 065
  18. ASCORBIC ACID. [Concomitant]
     Active Substance: ASCORBIC ACID
  19. MYCOPHENOLIC ACID. [Suspect]
     Active Substance: MYCOPHENOLIC ACID
     Indication: PROPHYLAXIS AGAINST TRANSPLANT REJECTION
     Dosage: FREQUENCY: 2 EVERY 1 DAYS
     Route: 065
  20. GLYCERYL TRINITRATE [Concomitant]
     Active Substance: NITROGLYCERIN
  21. PLANTAGO AFRA [Concomitant]
     Active Substance: HERBALS
  22. AMLODIPINE [Concomitant]
     Active Substance: AMLODIPINE BESYLATE
  23. MYCOPHENOLIC ACID. [Suspect]
     Active Substance: MYCOPHENOLIC ACID
     Indication: PROPHYLAXIS AGAINST TRANSPLANT REJECTION
     Dosage: FREQUENCY: 2 EVERY 1 DAYS
     Route: 065

REACTIONS (1)
  - Gastrointestinal disorder [Unknown]
